FAERS Safety Report 17261095 (Version 1)
Quarter: 2020Q1

REPORT INFORMATION
  Report Type: Spontaneous
  Country: ES (occurrence: ES)
  Receive Date: 20200113
  Receipt Date: 20200113
  Transmission Date: 20200409
  Serious: Yes (Life-Threatening)
  Sender: FDA-Public Use
  Company Number: ES-ROCHE-2513768

PATIENT
  Age: 85 Year
  Sex: Female
  Weight: 67.7 kg

DRUGS (20)
  1. PREDNISONA [Concomitant]
     Active Substance: PREDNISONE
     Dosage: 1,5-0-0-0. UNIDAD 1.5 CADA 1 DIAS.
     Route: 048
     Dates: end: 20191024
  2. METILPREDNISOLONA [METHYLPREDNISOLONE] [Concomitant]
     Active Substance: METHYLPREDNISOLONE
     Indication: PREMEDICATION
     Dosage: 20 MG IV METILPREDNISOLONA
     Route: 042
     Dates: start: 20191107, end: 20191107
  3. DIOVAN [Concomitant]
     Active Substance: VALSARTAN
     Route: 048
  4. POLARAMINE [Concomitant]
     Active Substance: DEXCHLORPHENIRAMINE MALEATE
     Dosage: 1 AMP. IV POLARAMINE
     Route: 042
     Dates: start: 20191010, end: 20191010
  5. OMEPRAZOL [OMEPRAZOLE] [Concomitant]
     Active Substance: OMEPRAZOLE
     Route: 048
  6. PREDNISONA [Concomitant]
     Active Substance: PREDNISONE
     Route: 048
     Dates: start: 20191024
  7. ARTEDIL [Concomitant]
     Active Substance: MANIDIPINE HYDROCHLORIDE
     Route: 048
  8. ASPIRIN. [Concomitant]
     Active Substance: ASPIRIN
     Route: 048
  9. DEMILOS [Concomitant]
     Active Substance: CALCIUM CARBONATE\CHOLECALCIFEROL
     Route: 002
  10. TOCILIZUMAB. [Suspect]
     Active Substance: TOCILIZUMAB
     Indication: TEMPORAL ARTERITIS
     Dosage: 560 MG/MES
     Route: 042
     Dates: start: 20191010, end: 20191107
  11. POLARAMINE [Concomitant]
     Active Substance: DEXCHLORPHENIRAMINE MALEATE
     Indication: PREMEDICATION
     Dosage: 1 AMP. IV POLARAMINE
     Route: 042
     Dates: start: 20191107, end: 20191107
  12. LORMETAZEPAM [Concomitant]
     Active Substance: LORMETAZEPAM
     Route: 048
  13. LOBIVON [Concomitant]
     Active Substance: NEBIVOLOL HYDROCHLORIDE
     Route: 048
  14. MIRTAZAPINA [Concomitant]
     Active Substance: MIRTAZAPINE
     Route: 048
  15. VISANNE [Concomitant]
     Active Substance: DIENOGEST
  16. YELLOX [Concomitant]
     Active Substance: BROMFENAC SODIUM
     Route: 047
  17. PARACETAMOL [Concomitant]
     Active Substance: ACETAMINOPHEN
     Indication: PREMEDICATION
     Dosage: 1 GR PARACETAMOL IV
     Route: 042
     Dates: start: 20191107, end: 20191107
  18. METILPREDNISOLONA [METHYLPREDNISOLONE] [Concomitant]
     Active Substance: METHYLPREDNISOLONE
     Dosage: 20 MG IV METILPREDNISOLONA
     Route: 042
     Dates: start: 20191010, end: 20191010
  19. PARACETAMOL [Concomitant]
     Active Substance: ACETAMINOPHEN
     Dosage: 1 GR PARACETAMOL IV
     Route: 042
     Dates: start: 20191010, end: 20191010
  20. XALATAN [Concomitant]
     Active Substance: LATANOPROST
     Route: 047

REACTIONS (2)
  - Acute myeloid leukaemia [Not Recovered/Not Resolved]
  - Headache [Recovered/Resolved]

NARRATIVE: CASE EVENT DATE: 20191125
